FAERS Safety Report 8548315-X (Version None)
Quarter: 2012Q3

REPORT INFORMATION
  Report Type: 
  Country: None (occurrence: None)
  Receive Date: 20120719
  Receipt Date: 20120719
  Transmission Date: 20120928
  Serious: Yes (Hospitalization, Disabling)
  Sender: FDA-Public Use
  Company Number: None

PATIENT
  Age: 64 Year
  Sex: Female
  Weight: 61.6892 kg

DRUGS (2)
  1. PICATO [Suspect]
     Indication: SKIN CANCER
     Dosage: 1 DOSE ONCE A DAY
     Dates: start: 20120608
  2. PICATO [Suspect]
     Indication: SKIN CANCER
     Dosage: 1 DOSE ONCE A DAY
     Dates: start: 20120607

REACTIONS (4)
  - VISUAL IMPAIRMENT [None]
  - EYE SWELLING [None]
  - OCULAR HYPERAEMIA [None]
  - SWELLING FACE [None]
